FAERS Safety Report 6664121-5 (Version None)
Quarter: 2010Q2

REPORT INFORMATION
  Report Type: 
  Country: None (occurrence: None)
  Receive Date: 20100401
  Receipt Date: 20100324
  Transmission Date: 20101027
  Serious: Yes (Hospitalization)
  Sender: FDA-Public Use
  Company Number: B0638090A

PATIENT
  Age: 86 Year
  Sex: Female

DRUGS (12)
  1. DIGOXIN [Suspect]
     Indication: CARDIAC FAILURE
     Dosage: .5MG PER DAY
     Route: 048
  2. SEGURIL [Concomitant]
     Indication: CARDIAC FAILURE
     Route: 048
  3. ACOVIL [Concomitant]
     Indication: CARDIAC FAILURE
     Dosage: 5MG IN THE MORNING
     Route: 048
  4. ACFOL [Concomitant]
     Route: 048
  5. ALLOPURINOL [Concomitant]
     Route: 048
  6. ALDACTONE [Concomitant]
     Route: 048
  7. EMCONCOR [Concomitant]
     Route: 048
  8. LANSOPRAZOLE [Concomitant]
     Dosage: 30MG AT NIGHT
     Route: 048
  9. DUPHALAC [Concomitant]
     Route: 065
  10. EMPORTAL [Concomitant]
     Route: 065
  11. ZINNAT [Concomitant]
     Dosage: 500MG TWICE PER DAY
     Route: 048
  12. OLMESARTAN [Concomitant]
     Route: 065

REACTIONS (9)
  - ABDOMINAL PAIN [None]
  - BRADYCARDIA [None]
  - CARDIOACTIVE DRUG LEVEL INCREASED [None]
  - CONSTIPATION [None]
  - DRUG ADMINISTRATION ERROR [None]
  - MEDICATION ERROR [None]
  - THERAPEUTIC AGENT TOXICITY [None]
  - VENTRICULAR HYPOKINESIA [None]
  - VOMITING [None]
